FAERS Safety Report 9840208 (Version 1)
Quarter: 2014Q1

REPORT INFORMATION
  Report Type: Spontaneous
  Country: FR (occurrence: FR)
  Receive Date: 20140124
  Receipt Date: 20140124
  Transmission Date: 20141002
  Serious: Yes (Hospitalization, Other)
  Sender: FDA-Public Use
  Company Number: FR-ACCORD-021405

PATIENT
  Age: 69 Year
  Sex: Male

DRUGS (1)
  1. GEMCITABINE\GEMCITABINE HYDROCHLORIDE [Suspect]
     Indication: ADENOCARCINOMA PANCREAS
     Dosage: TOOK LAST INFUSION - 2NDCYCLE,?3RD INFUSION

REACTIONS (3)
  - Myopathy [Recovered/Resolved]
  - Erythema [Recovered/Resolved]
  - Rhabdomyolysis [Recovered/Resolved]
